FAERS Safety Report 8502495-0 (Version None)
Quarter: 2012Q3

REPORT INFORMATION
  Report Type: 
  Country: None (occurrence: None)
  Receive Date: 20120711
  Receipt Date: 20120706
  Transmission Date: 20120928
  Serious: Yes (Hospitalization)
  Sender: FDA-Public Use
  Company Number: US-BAYER-2012-000038

PATIENT
  Age: 29 Year
  Sex: Female
  Weight: 82.086 kg

DRUGS (30)
  1. AMBIEN [Concomitant]
     Indication: SLEEP DISORDER
     Dosage: UNK
     Dates: start: 20080101
  2. TRAZODONE HCL [Concomitant]
     Indication: SLEEP DISORDER
     Dosage: 100 MG, UNK
     Dates: start: 20081010, end: 20090119
  3. ACETAMINOPHEN [Concomitant]
     Indication: SLEEP DISORDER
     Dosage: UNK
     Dates: start: 20070101
  4. ACETAMINOPHEN [Concomitant]
     Indication: PAIN
  5. CLINDAMYCIN [Concomitant]
     Dosage: 150 MG, UNK
     Dates: start: 20081002
  6. PULMICORT [Concomitant]
  7. IBUPROFEN [Concomitant]
  8. YAZ [Suspect]
     Indication: CONTRACEPTION
     Dosage: UNK
     Dates: start: 20081001, end: 20090101
  9. YAZ [Suspect]
     Indication: PREMENSTRUAL SYNDROME
  10. MELATONIN [Concomitant]
     Indication: SLEEP DISORDER
     Dosage: UNK
     Dates: start: 20030101
  11. HYDROCODONE BITARTRATE AND ACETAMINOPHEN [Concomitant]
     Dosage: 7.5MG/750MG
     Dates: start: 20081006, end: 20081125
  12. CYCLOBENZAPRINE [Concomitant]
     Dosage: 10 MG, UNK
     Dates: start: 20081111
  13. METHOCARBAMOL [Concomitant]
     Indication: PAIN
     Dosage: UNK
     Dates: start: 20081120, end: 20090102
  14. ALBUTEROL [Concomitant]
     Indication: ASTHMA
     Dosage: UNK
     Dates: start: 20010101
  15. NORCO [Concomitant]
     Indication: PAIN
     Dosage: UNK
     Dates: start: 20080101
  16. BENADRYL [Concomitant]
     Indication: MULTIPLE ALLERGIES
  17. PROAIR HFA [Concomitant]
     Dosage: 8.5 G, UNK
     Dates: start: 20081027
  18. METHOCARBAMOL [Concomitant]
     Indication: INFLAMMATION
  19. BENADRYL [Concomitant]
     Indication: SLEEP DISORDER
     Dosage: UNK
     Dates: start: 20080101
  20. BUSPIRONE HCL [Concomitant]
     Dosage: 10 MG, UNK
     Dates: start: 20081111
  21. ANTIBIOTICS [Concomitant]
  22. MICROGESTIN 1.5/30 [Concomitant]
  23. MULTI-VITAMIN [Concomitant]
     Indication: VITAMIN SUPPLEMENTATION
     Dosage: UNK
     Dates: start: 20030101
  24. VITAMIN D [Concomitant]
     Indication: VITAMIN SUPPLEMENTATION
     Dosage: UNK
     Dates: start: 20030101
  25. CHLORHEXIDINE GLUCONATE [Concomitant]
     Dosage: 473ML
     Dates: start: 20081002
  26. ZOLPIDEM [Concomitant]
     Dosage: 10 MG, UNK
     Dates: start: 20081203, end: 20090102
  27. ZANAFLEX [Concomitant]
  28. OXYCODONE HCL AND ACETAMINOPHEN [Concomitant]
     Dosage: 5MG-325MG
     Dates: start: 20081002
  29. OTHER ANALGESICS AND ANTIPYRETICS [Concomitant]
  30. NAPROXEN [Concomitant]

REACTIONS (2)
  - DEEP VEIN THROMBOSIS [None]
  - PULMONARY EMBOLISM [None]
